FAERS Safety Report 20621007 (Version 1)
Quarter: 2022Q1

REPORT INFORMATION
  Report Type: Spontaneous
  Country: US (occurrence: None)
  Receive Date: 20220321
  Receipt Date: 20220321
  Transmission Date: 20220423
  Serious: Yes (Other)
  Sender: FDA-Public Use
  Company Number: None

PATIENT
  Age: 48 Year
  Sex: Female
  Weight: 49.5 kg

DRUGS (2)
  1. VIGAMOX [Suspect]
     Active Substance: MOXIFLOXACIN HYDROCHLORIDE
     Indication: Endophthalmitis
     Dosage: OTHER FREQUENCY : ONCE;?
     Route: 031
     Dates: start: 20220317, end: 20220317
  2. VIGAMOX [Suspect]
     Active Substance: MOXIFLOXACIN HYDROCHLORIDE
     Indication: Prophylaxis

REACTIONS (1)
  - Toxic anterior segment syndrome [None]

NARRATIVE: CASE EVENT DATE: 20220317
